FAERS Safety Report 5210690-1 (Version None)
Quarter: 2007Q1

REPORT INFORMATION
  Report Type: 
  Country: None (occurrence: None)
  Receive Date: 20070117
  Receipt Date: 20070111
  Transmission Date: 20070707
  Serious: Yes (Other)
  Sender: FDA-Public Use
  Company Number: GB-GLAXOSMITHKLINE-B0453734A

PATIENT
  Age: 25 Year
  Sex: Female

DRUGS (1)
  1. SEROXAT [Suspect]
     Indication: ANXIETY
     Route: 048
     Dates: start: 20010101, end: 20030101

REACTIONS (6)
  - HALLUCINATION [None]
  - HEART RATE IRREGULAR [None]
  - INSOMNIA [None]
  - MYDRIASIS [None]
  - PANIC ATTACK [None]
  - PARAESTHESIA [None]
